FAERS Safety Report 4277238-X (Version None)
Quarter: 2004Q1

REPORT INFORMATION
  Report Type: 
  Country: None (occurrence: None)
  Receive Date: 20040120
  Receipt Date: 20040120
  Transmission Date: 20041129
  Serious: Yes (Life-Threatening, Hospitalization)
  Sender: FDA-Public Use
  Company Number: None

PATIENT
  Age: 69 Year
  Sex: Male
  Weight: 81.6 kg

DRUGS (2)
  1. METOPROLOL [Suspect]
  2. ISOSORBIDE TAB, ORAL [Suspect]
     Dosage: 10MG PO
     Route: 048
     Dates: start: 20030821, end: 20030824

REACTIONS (1)
  - SYNCOPE [None]
